FAERS Safety Report 6823337-5 (Version None)
Quarter: 2010Q3

REPORT INFORMATION
  Report Type: 
  Country: None (occurrence: None)
  Receive Date: 20100708
  Receipt Date: 20100702
  Transmission Date: 20110219
  Serious: Yes (Hospitalization, Other)
  Sender: FDA-Public Use
  Company Number: AU-WYE-G06350110

PATIENT
  Age: 63 Year
  Sex: Female

DRUGS (6)
  1. EFFEXOR XR [Suspect]
     Indication: DEPRESSION
     Dosage: INITIATED ON 150MG THEN INCREASED TO 225MG
  2. ACETYLSALICYLIC ACID [Concomitant]
     Dosage: 100MG
  3. ATORVASTATIN [Concomitant]
     Dosage: 80MG ONCE DAILY AT NIGHT
  4. CLOPIDOGREL [Concomitant]
     Dosage: 75MG
  5. METOPROLOL [Concomitant]
     Dosage: 25MG TWICE DAILY
  6. LEVOTHYROXINE SODIUM [Concomitant]
     Dosage: 50MCG DAILY

REACTIONS (7)
  - ANXIETY [None]
  - CONDITION AGGRAVATED [None]
  - DEPRESSION [None]
  - MALAISE [None]
  - MYOCARDIAL INFARCTION [None]
  - POOR QUALITY SLEEP [None]
  - STENT PLACEMENT [None]
